FAERS Safety Report 6111195-6 (Version None)
Quarter: 2009Q1

REPORT INFORMATION
  Report Type: 
  Country: None (occurrence: None)
  Receive Date: 20090309
  Receipt Date: 20090309
  Transmission Date: 20090719
  Serious: Yes (Life-Threatening)
  Sender: FDA-Public Use
  Company Number: None

PATIENT
  Sex: Male
  Weight: 89 kg

DRUGS (17)
  1. SIROLIMUS [Suspect]
     Indication: IMMUNOSUPPRESSION
     Dosage: 2 MG QD PO
     Route: 048
     Dates: start: 20060426, end: 20080908
  2. SIROLIMUS [Suspect]
     Indication: LUNG TRANSPLANT
     Dosage: 2 MG QD PO
     Route: 048
     Dates: start: 20060426, end: 20080908
  3. PROGRAF [Concomitant]
  4. PREDNISONE [Concomitant]
  5. SEPTRA DS [Concomitant]
  6. MG OXIDE [Concomitant]
  7. VIT D [Concomitant]
  8. CALCIUM CARBONATE [Concomitant]
  9. NYCELEX [Concomitant]
  10. METOPROLOL TARTRATE [Concomitant]
  11. REGULAR INSULIN [Concomitant]
  12. INSULATARD NPH HUMAN [Concomitant]
  13. PREVACID [Concomitant]
  14. FLONASE [Concomitant]
  15. FLOMAX [Concomitant]
  16. FUROSEMIDE [Concomitant]
  17. PROSCAR [Concomitant]

REACTIONS (1)
  - DEEP VEIN THROMBOSIS [None]
